FAERS Safety Report 5311566-1 (Version None)
Quarter: 2007Q2

REPORT INFORMATION
  Report Type: 
  Country: None (occurrence: None)
  Receive Date: 20070426
  Receipt Date: 20070426
  Transmission Date: 20071010
  Serious: Yes (Other)
  Sender: FDA-Public Use
  Company Number: None

PATIENT
  Age: 61 Year
  Sex: Male
  Weight: 86.1834 kg

DRUGS (12)
  1. CLOPIDOGREL [Suspect]
     Indication: STENT PLACEMENT
     Dosage: PO, DAILY 75 MG DAILY
     Route: 048
     Dates: start: 20061107, end: 20061109
  2. SPIRONOLACTONE [Concomitant]
  3. NIACIN [Concomitant]
  4. GLYBURIDE [Concomitant]
  5. IPRATROPIUM BROMIDE [Concomitant]
  6. LEVALBUTEROL HCL [Concomitant]
  7. NORTRIPTYLINE HCL [Concomitant]
  8. METOPROLOL SUCCINATE [Concomitant]
  9. FUROSEMIDE [Concomitant]
  10. ASPIRIN [Concomitant]
  11. APAP TAB [Concomitant]
  12. NITROGLYCERIN [Concomitant]

REACTIONS (1)
  - RASH ERYTHEMATOUS [None]
